FAERS Safety Report 20834956 (Version 4)
Quarter: 2023Q1

REPORT INFORMATION
  Report Type: Spontaneous
  Country: US (occurrence: US)
  Receive Date: 20220516
  Receipt Date: 20230328
  Transmission Date: 20230417
  Serious: No
  Sender: FDA-Public Use
  Company Number: US-PFIZER INC-202200702540

PATIENT
  Age: 45 Year
  Sex: Female

DRUGS (1)
  1. XELJANZ XR [Suspect]
     Active Substance: TOFACITINIB CITRATE
     Dosage: UNK
     Dates: start: 20220412, end: 20221130

REACTIONS (6)
  - Gastric disorder [Recovered/Resolved]
  - Rash macular [Unknown]
  - Skin discomfort [Unknown]
  - Drug ineffective [Unknown]
  - Skin discolouration [Unknown]
  - Pain [Not Recovered/Not Resolved]
